FAERS Safety Report 23561466 (Version 1)
Quarter: 2024Q1

REPORT INFORMATION
  Report Type: Report from Study
  Country: DE (occurrence: DE)
  Receive Date: 20240225
  Receipt Date: 20240225
  Transmission Date: 20240409
  Serious: Yes (Death, Other)
  Sender: FDA-Public Use
  Company Number: DE-EMA-DD-20231227-7482707-115434

PATIENT
  Sex: Male

DRUGS (1)
  1. ERELZI [Suspect]
     Active Substance: ETANERCEPT-SZZS
     Indication: Product used for unknown indication
     Dosage: UNK
     Route: 065
     Dates: end: 20191126

REACTIONS (3)
  - Death [Fatal]
  - Pulmonary mass [Unknown]
  - Bone pain [Unknown]

NARRATIVE: CASE EVENT DATE: 20191126
